FAERS Safety Report 17279832 (Version 1)
Quarter: 2020Q1

REPORT INFORMATION
  Report Type: Spontaneous
  Country: NL (occurrence: NL)
  Receive Date: 20200116
  Receipt Date: 20200116
  Transmission Date: 20200409
  Serious: Yes (Hospitalization)
  Sender: FDA-Public Use
  Company Number: NL-009507513-2001NLD004775

PATIENT
  Sex: Male
  Weight: 95 kg

DRUGS (8)
  1. OXYCODONE [Concomitant]
     Active Substance: OXYCODONE
     Indication: PROPHYLAXIS
     Dosage: IF NECESSARY 4 TIMES PER DAY 1 PIECE
     Route: 048
  2. METOCLOPRAMIDE. [Concomitant]
     Active Substance: METOCLOPRAMIDE
     Dosage: IF NECESSARY 3 TIMES PER DAY 1 PIECE
     Route: 048
  3. POLYETHYLENE GLYCOL [Concomitant]
     Active Substance: POLYETHYLENE GLYCOLS
     Indication: PROPHYLAXIS
     Dosage: ONCE PER DAY 1 PIECE
     Route: 048
  4. OXYCODONE [Concomitant]
     Active Substance: OXYCODONE
     Dosage: 2 TIMES PER DAY 1 PIECE
     Route: 048
  5. PEMBROLIZUMAB. [Suspect]
     Active Substance: PEMBROLIZUMAB
     Indication: LUNG SQUAMOUS CELL CARCINOMA STAGE IV
     Dosage: 200MG, ONCE PER 3 WEEKS
     Route: 042
     Dates: start: 20190213
  6. ACETAMINOPHEN. [Concomitant]
     Active Substance: ACETAMINOPHEN
     Indication: PROPHYLAXIS
     Dosage: 2 TIMES PER DAY 1 PIECE
     Route: 048
  7. IPRATROPIUM BROMIDE. [Concomitant]
     Active Substance: IPRATROPIUM BROMIDE
     Dosage: 20 MICROGRAM/DOSE, ONCE PER DAY 1 DOSE
  8. TIOTROPIUM BROMIDE [Concomitant]
     Active Substance: TIOTROPIUM BROMIDE
     Dosage: ONCE PER DAY 1 PIECE
     Route: 055

REACTIONS (1)
  - Lung abscess [Recovered/Resolved]
